FAERS Safety Report 8850642 (Version 7)
Quarter: 2013Q2

REPORT INFORMATION
  Report Type: Spontaneous
  Country: US (occurrence: US)
  Receive Date: 20121019
  Receipt Date: 20130517
  Transmission Date: 20140414
  Serious: Yes (Hospitalization, Disabling, Other)
  Sender: FDA-Public Use
  Company Number: US-009507513-1210USA006560

PATIENT
  Sex: Female

DRUGS (9)
  1. FOSAMAX [Suspect]
     Indication: PROPHYLAXIS
     Dosage: 10 MG QD
     Route: 048
     Dates: start: 20010818, end: 20010825
  2. FOSAMAX [Suspect]
     Indication: OSTEOPOROSIS
     Dosage: 70 MG, QW
     Route: 048
     Dates: start: 200108, end: 200612
  3. FOSAMAX [Suspect]
     Dosage: 70 MG, QW
     Route: 048
     Dates: start: 200801, end: 200804
  4. ALENDRONATE SODIUM [Suspect]
     Indication: OSTEOPOROSIS
     Dosage: 70 MG, QW
     Route: 048
     Dates: start: 200805, end: 200812
  5. PRILOSEC [Concomitant]
     Dosage: UNK
     Dates: start: 200010, end: 200410
  6. CALCIUM (UNSPECIFIED) [Concomitant]
     Dosage: 1200 MG, UNK
     Dates: start: 2000
  7. VITAMIN D (UNSPECIFIED) [Concomitant]
     Dosage: 400 UNK, UNK
     Dates: start: 2000
  8. OMEGA-3 MARINE TRIGLYCERIDES [Concomitant]
     Dosage: UNK
     Dates: start: 2000
  9. LACTAID [Concomitant]
     Dosage: UNK
     Dates: start: 2000

REACTIONS (37)
  - Femur fracture [Unknown]
  - Open reduction of fracture [Unknown]
  - Fall [Unknown]
  - Internal fixation of fracture [Unknown]
  - Device failure [Unknown]
  - Internal fixation of fracture [Unknown]
  - Fracture nonunion [Recovered/Resolved]
  - Breast prosthesis removal [Unknown]
  - Femur fracture [Recovered/Resolved]
  - Open reduction of fracture [Recovered/Resolved]
  - Device failure [Unknown]
  - Femur fracture [Unknown]
  - Intramedullary rod insertion [Unknown]
  - Hypoxia [Unknown]
  - Dyspnoea [Recovered/Resolved]
  - Sleep apnoea syndrome [Unknown]
  - Anaphylactic reaction [Not Recovered/Not Resolved]
  - Medical device removal [Unknown]
  - Laryngeal oedema [Recovered/Resolved]
  - Headache [Unknown]
  - Constipation [Unknown]
  - Obesity [Unknown]
  - Ear operation [Unknown]
  - Thyroid neoplasm [Unknown]
  - Bursitis [Unknown]
  - Liver function test abnormal [Unknown]
  - Anaemia [Unknown]
  - Transfusion [Unknown]
  - Haemoglobin decreased [Unknown]
  - Blood parathyroid hormone increased [Recovered/Resolved]
  - Vitamin D deficiency [Unknown]
  - Vulval disorder [Unknown]
  - Hyperlipidaemia [Not Recovered/Not Resolved]
  - Osteoarthritis [Unknown]
  - Device failure [Unknown]
  - Oedema peripheral [Unknown]
  - Hypocalcaemia [Unknown]
